FAERS Safety Report 10151697 (Version 1)
Quarter: 2014Q2

REPORT INFORMATION
  Report Type: Spontaneous
  Country: CA (occurrence: CA)
  Receive Date: 20140505
  Receipt Date: 20140505
  Transmission Date: 20141212
  Serious: Yes (Other)
  Sender: FDA-Public Use
  Company Number: CA-AMGEN INC.-CANSP2014031411

PATIENT
  Age: 18 Year
  Sex: Female

DRUGS (7)
  1. ENBREL [Suspect]
     Indication: JUVENILE IDIOPATHIC ARTHRITIS
     Dosage: 25 MG, 2 TIMES/WK
     Route: 065
     Dates: start: 20080718
  2. NAPROXEN [Concomitant]
     Dosage: UNK
  3. PLAQUENIL                          /00072602/ [Concomitant]
     Dosage: UNK
  4. ARAVA [Concomitant]
     Dosage: UNK
  5. MTX                                /00113801/ [Concomitant]
  6. AMITRIPTYLINE [Concomitant]
     Dosage: UNK
  7. FOLIC ACID [Concomitant]
     Dosage: UNK

REACTIONS (3)
  - Impaired healing [Unknown]
  - Foot fracture [Unknown]
  - Pain in extremity [Unknown]
